FAERS Safety Report 8880096 (Version 1)
Quarter: 2012Q4

REPORT INFORMATION
  Report Type: 
  Country: US (occurrence: US)
  Receive Date: 20121101
  Receipt Date: 20121101
  Transmission Date: 20130627
  Serious: Yes (Disabling, Other)
  Sender: FDA-Public Use
  Company Number: US-TARO-2012P1011106

PATIENT
  Sex: Female

DRUGS (2)
  1. PHENYTOIN SODIUM EXTENDED CAPSULES USP 100MG [Suspect]
     Dates: start: 200906
  2. PHENYTOIN [Suspect]
     Dates: start: 200906

REACTIONS (5)
  - Toxic epidermal necrolysis [Unknown]
  - Stevens-Johnson syndrome [Unknown]
  - Multiple injuries [None]
  - Activities of daily living impaired [None]
  - Emotional distress [None]
